FAERS Safety Report 9907769 (Version 4)
Quarter: 2014Q2

REPORT INFORMATION
  Report Type: Spontaneous
  Country: NL (occurrence: NL)
  Receive Date: 20140219
  Receipt Date: 20140519
  Transmission Date: 20141212
  Serious: Yes (Life-Threatening, Other)
  Sender: FDA-Public Use
  Company Number: NL-AMGEN-NLDSP2014011520

PATIENT
  Age: 52 Year
  Sex: Female
  Weight: 80 kg

DRUGS (15)
  1. ENBREL [Suspect]
     Indication: RHEUMATOID ARTHRITIS
     Dosage: 50 MG, WEEKLY
     Route: 058
     Dates: start: 20110615, end: 20121205
  2. METOCLOPRAMIDE [Concomitant]
     Indication: NAUSEA
     Dosage: 10 MG 1-3 PER DAY
     Route: 048
     Dates: start: 2014
  3. ATENOLOL [Concomitant]
     Indication: HYPERTENSION
     Dosage: 50 MG, 1X/DAY
     Route: 048
     Dates: start: 2010
  4. SIMVASTATIN [Concomitant]
     Dosage: UNK
  5. DENOSUMAB [Concomitant]
     Dosage: UNK
  6. CALCIUM + VIT D [Concomitant]
     Dosage: UNK
  7. PREDNISOLONE [Concomitant]
     Dosage: 5 MG, 1X/DAY
     Route: 048
     Dates: start: 2010
  8. OXYCODONE [Concomitant]
     Indication: PAIN
     Dosage: 10 MG, 2X/DAY
     Route: 048
     Dates: start: 2014
  9. OXYCODONE [Concomitant]
     Dosage: 5 MG, 0 - 4 PER DAY
     Route: 048
     Dates: start: 2014
  10. OMEPRAZOL                          /00661201/ [Concomitant]
     Indication: ABDOMINAL DISCOMFORT
     Dosage: 40 MG, 1X/DAY
     Route: 048
     Dates: start: 2010
  11. AMLODIPINE [Concomitant]
     Indication: HYPERTENSION
     Dosage: 5 MG, 1X/DAY
     Route: 048
     Dates: start: 20140227
  12. NAPROXEN [Concomitant]
     Dosage: 500 MG, 2X/DAY
     Route: 048
     Dates: start: 2010, end: 20140201
  13. METHOTREXATE [Concomitant]
     Dosage: 10 MG, WEEKLY
     Dates: start: 20110107, end: 20110615
  14. METHOTREXATE [Concomitant]
     Dosage: 20 MG, WEEKLY
  15. FOLIC ACID [Concomitant]
     Dosage: 10 MG, WEEKLY
     Dates: start: 20110107, end: 20110615

REACTIONS (2)
  - Breast cancer metastatic [Unknown]
  - Metastases to bone [Unknown]
